FAERS Safety Report 12032583 (Version 1)
Quarter: 2016Q1

REPORT INFORMATION
  Report Type: Report from Study
  Country: US (occurrence: US)
  Receive Date: 20160207
  Receipt Date: 20160207
  Transmission Date: 20160526
  Serious: No
  Sender: FDA-Public Use
  Company Number: US-ABBVIE-15K-163-1513182-00

PATIENT
  Age: 30 Year
  Sex: Male
  Weight: 61.29 kg

DRUGS (3)
  1. METHOTREXATE [Concomitant]
     Active Substance: METHOTREXATE
     Indication: CROHN^S DISEASE
  2. HUMIRA [Suspect]
     Active Substance: ADALIMUMAB
     Indication: COLITIS ULCERATIVE
     Route: 058
  3. HUMIRA [Suspect]
     Active Substance: ADALIMUMAB
     Route: 058

REACTIONS (7)
  - Asthenia [Not Recovered/Not Resolved]
  - Colitis ulcerative [Recovered/Resolved]
  - Drug effect incomplete [Recovered/Resolved]
  - Fatigue [Not Recovered/Not Resolved]
  - Device issue [Unknown]
  - Exposure via direct contact [Unknown]
  - Bronchospasm [Unknown]

NARRATIVE: CASE EVENT DATE: 2015
